FAERS Safety Report 6612013-X (Version None)
Quarter: 2010Q1

REPORT INFORMATION
  Report Type: 
  Country: None (occurrence: None)
  Receive Date: 20100303
  Receipt Date: 20100217
  Transmission Date: 20100710
  Serious: Yes (Congenital Anomaly)
  Sender: FDA-Public Use
  Company Number: A0682206A

PATIENT
  Sex: Female

DRUGS (1)
  1. PAXIL [Suspect]
     Indication: DRUG USE FOR UNKNOWN INDICATION

REACTIONS (2)
  - CARDIAC MURMUR [None]
  - DRUG EXPOSURE DURING PREGNANCY [None]
